FAERS Safety Report 7579749-8 (Version None)
Quarter: 2011Q2

REPORT INFORMATION
  Report Type: 
  Country: None (occurrence: None)
  Receive Date: 20110622
  Receipt Date: 20110614
  Transmission Date: 20111010
  Serious: Yes (Life-Threatening)
  Sender: FDA-Public Use
  Company Number: 012352

PATIENT
  Age: 56 Year
  Sex: Male

DRUGS (11)
  1. LORAZEPAM [Concomitant]
  2. BUSULFAN [Suspect]
     Indication: STEM CELL TRANSPLANT
     Dosage: 60 MG, DAILY DOSE, INTRAVENOUS; 224 MG, DAILY, DOSE, INTRAVENOUS
     Route: 042
     Dates: start: 20101202, end: 20101205
  3. BUSULFAN [Suspect]
     Indication: STEM CELL TRANSPLANT
     Dosage: 60 MG, DAILY DOSE, INTRAVENOUS; 224 MG, DAILY, DOSE, INTRAVENOUS
     Route: 042
     Dates: start: 20101129, end: 20101129
  4. ACETAMINOPHEN [Concomitant]
  5. ETOPOSIDE [Concomitant]
  6. CYCLOPHOSPHAMIDE [Concomitant]
  7. NYSTATIN [Concomitant]
  8. DIPHENHYDRAMINE HCL [Concomitant]
  9. PROCHLORPERAZINE MALEATE [Concomitant]
  10. ACYCLOVIR [Concomitant]
  11. METOCLOPRAMIDE [Concomitant]

REACTIONS (12)
  - ILEAL ULCER [None]
  - ENGRAFTMENT SYNDROME [None]
  - WHITE BLOOD CELL COUNT DECREASED [None]
  - SEPTIC SHOCK [None]
  - LIVER FUNCTION TEST ABNORMAL [None]
  - FEBRILE NEUTROPENIA [None]
  - HEART RATE INCREASED [None]
  - KLEBSIELLA BACTERAEMIA [None]
  - ABDOMINAL PAIN [None]
  - PLATELET COUNT DECREASED [None]
  - ATRIAL FIBRILLATION [None]
  - CLOSTRIDIUM DIFFICILE COLITIS [None]
